FAERS Safety Report 4810120-5 (Version None)
Quarter: 2005Q4

REPORT INFORMATION
  Report Type: 
  Country: None (occurrence: None)
  Receive Date: 20051019
  Receipt Date: 20051012
  Transmission Date: 20060501
  Serious: Yes (Death)
  Sender: FDA-Public Use
  Company Number: USA-2005-0021516

PATIENT
  Age: 37 Year
  Sex: 0

DRUGS (3)
  1. MORPHINE [Suspect]
     Dosage: SEE TEXT
  2. DIAZEPAM [Suspect]
     Dosage: SEE TEXT
  3. CITALOPRAM(CITALOPRAM) [Suspect]
     Dosage: SEE TEXT

REACTIONS (1)
  - DEATH [None]
